FAERS Safety Report 10782349 (Version 1)
Quarter: 2015Q1

REPORT INFORMATION
  Report Type: Report from Study
  Country: US (occurrence: US)
  Receive Date: 20150210
  Receipt Date: 20150210
  Transmission Date: 20150721
  Serious: Yes (Other)
  Sender: FDA-Public Use
  Company Number: US-BAXTER-2015BAX006886

PATIENT
  Sex: Male

DRUGS (1)
  1. GAMMAGARD S/D [Suspect]
     Active Substance: HUMAN IMMUNOGLOBULIN G
     Indication: PRODUCT USED FOR UNKNOWN INDICATION
     Route: 042
     Dates: start: 1998

REACTIONS (2)
  - Viral infection [Not Recovered/Not Resolved]
  - Squamous cell carcinoma of the tongue [Not Recovered/Not Resolved]

NARRATIVE: CASE EVENT DATE: 2000
